FAERS Safety Report 19278302 (Version 1)
Quarter: 2021Q2

REPORT INFORMATION
  Report Type: Spontaneous
  Country: US (occurrence: US)
  Receive Date: 20210520
  Receipt Date: 20210520
  Transmission Date: 20210717
  Serious: Yes (Hospitalization)
  Sender: FDA-Public Use
  Company Number: None

PATIENT
  Age: 29 Month
  Sex: Female
  Weight: 12.2 kg

DRUGS (3)
  1. DOXORUBICIN HYDROCHLORIDE. [Suspect]
     Active Substance: DOXORUBICIN HYDROCHLORIDE
     Dates: end: 20210501
  2. CISPLATIN. [Suspect]
     Active Substance: CISPLATIN
     Dates: end: 20210507
  3. ZINECARD [Suspect]
     Active Substance: DEXRAZOXANE HYDROCHLORIDE
     Dates: end: 20210501

REACTIONS (6)
  - Electrolyte imbalance [None]
  - Anaemia [None]
  - Diarrhoea [None]
  - Renal tubular acidosis [None]
  - Hepatic mass [None]
  - Fanconi syndrome [None]

NARRATIVE: CASE EVENT DATE: 20210514
